FAERS Safety Report 6223358-X (Version None)
Quarter: 2009Q2

REPORT INFORMATION
  Report Type: 
  Country: None (occurrence: None)
  Receive Date: 20090609
  Receipt Date: 20090608
  Transmission Date: 20091009
  Serious: Yes (Death, Hospitalization, Other)
  Sender: FDA-Public Use
  Company Number: 2009SP006095

PATIENT
  Age: 68 Year
  Sex: Female

DRUGS (6)
  1. TEMODAL [Suspect]
     Indication: OLIGODENDROGLIOMA
     Dosage: PO
     Route: 048
     Dates: start: 20090119, end: 20090218
  2. CORTANCYL (CON.) [Concomitant]
  3. KEPPRA (CON.) [Concomitant]
  4. MODURETIC (CON.) [Concomitant]
  5. INIPOMP (CON.) [Concomitant]
  6. SOLU MEDROL (CON.) [Concomitant]

REACTIONS (6)
  - APLASIA [None]
  - BRONCHOPULMONARY ASPERGILLOSIS [None]
  - DISEASE COMPLICATION [None]
  - GENERAL PHYSICAL HEALTH DETERIORATION [None]
  - NEUROLOGICAL DECOMPENSATION [None]
  - PANCYTOPENIA [None]
